FAERS Safety Report 4585046-5 (Version None)
Quarter: 2005Q1

REPORT INFORMATION
  Report Type: 
  Country: None (occurrence: None)
  Receive Date: 20050217
  Receipt Date: 20041213
  Transmission Date: 20050727
  Serious: Yes (Other)
  Sender: FDA-Public Use
  Company Number: US-GLAXOSMITHKLINE-A0537229A

PATIENT
  Age: 17 Year
  Sex: Female
  Weight: 77.3 kg

DRUGS (3)
  1. WELLBUTRIN [Suspect]
     Indication: MAJOR DEPRESSION
     Route: 048
     Dates: start: 20041103, end: 20041113
  2. ALLERGY SHOTS [Concomitant]
  3. KEFLEX [Concomitant]
     Indication: ACNE
     Dosage: 250MG FOUR TIMES PER DAY

REACTIONS (3)
  - AMNESIA [None]
  - GRAND MAL CONVULSION [None]
  - INCONTINENCE [None]
